FAERS Safety Report 7681087-X (Version None)
Quarter: 2011Q3

REPORT INFORMATION
  Report Type: 
  Country: None (occurrence: None)
  Receive Date: 20110812
  Receipt Date: 20110810
  Transmission Date: 20111222
  Serious: Yes (Other)
  Sender: FDA-Public Use
  Company Number: US-PFIZER INC-2011112181

PATIENT
  Sex: Female

DRUGS (4)
  1. LYRICA [Suspect]
     Indication: PARAESTHESIA
     Dosage: 75 MG, 2X/DAY
     Route: 048
     Dates: start: 20110521, end: 20110521
  2. THORAZINE [Concomitant]
     Indication: BIPOLAR DISORDER
     Dosage: 100 MG, 1/2 TAB AT HS BEDTIME/ BID
     Route: 048
     Dates: start: 20090901
  3. LITHIUM [Concomitant]
     Indication: BIPOLAR DISORDER
     Dosage: 900 MG DAILY
     Dates: start: 20090901
  4. IBUPROFEN [Concomitant]
     Dosage: UNK

REACTIONS (7)
  - PANIC REACTION [None]
  - PRESYNCOPE [None]
  - BALANCE DISORDER [None]
  - SOMNOLENCE [None]
  - VISION BLURRED [None]
  - ANXIETY [None]
  - DIZZINESS [None]
